FAERS Safety Report 16191041 (Version 1)
Quarter: 2019Q2

REPORT INFORMATION
  Report Type: Spontaneous
  Country: JP (occurrence: JP)
  Receive Date: 20190412
  Receipt Date: 20190412
  Transmission Date: 20190711
  Serious: Yes (Other)
  Sender: FDA-Public Use
  Company Number: JP-PFIZER INC-2019159280

PATIENT
  Sex: Female

DRUGS (3)
  1. CELECOX [Suspect]
     Active Substance: CELECOXIB
     Dosage: UNK
     Route: 048
  2. CELECOX [Suspect]
     Active Substance: CELECOXIB
     Dosage: UNK
     Route: 048
  3. KALIMATE [Concomitant]
     Active Substance: CALCIUM POLYSTYRENE SULFONATE
     Dosage: UNK UNK, UNKNOWN FREQ.
     Route: 065

REACTIONS (1)
  - Loss of consciousness [Unknown]

NARRATIVE: CASE EVENT DATE: 20190403
